FAERS Safety Report 25737395 (Version 2)
Quarter: 2025Q3

REPORT INFORMATION
  Report Type: Report from Study
  Country: US (occurrence: US)
  Receive Date: 20250828
  Receipt Date: 20250828
  Transmission Date: 20251021
  Serious: Yes (Other)
  Sender: TRAVERE THERAPEUTICS
  Company Number: US-TRAVERE-2025TVT01397

PATIENT
  Age: 41 Year
  Sex: Male

DRUGS (5)
  1. FILSPARI [Suspect]
     Active Substance: SPARSENTAN
     Indication: IgA nephropathy
     Route: 048
     Dates: start: 20241122
  2. FILSPARI [Suspect]
     Active Substance: SPARSENTAN
     Route: 048
     Dates: start: 20241231
  3. SKYRIZI [Concomitant]
     Active Substance: RISANKIZUMAB-RZAA
  4. METHOCARBAMOL [Concomitant]
     Active Substance: METHOCARBAMOL
  5. CHLORTHALIDONE [Concomitant]
     Active Substance: CHLORTHALIDONE

REACTIONS (4)
  - Gastroenteritis viral [Unknown]
  - Abdominal pain upper [Unknown]
  - Vomiting [Unknown]
  - Blood urine present [None]

NARRATIVE: CASE EVENT DATE: 20250801
